FAERS Safety Report 25126032 (Version 1)
Quarter: 2025Q1

REPORT INFORMATION
  Report Type: Spontaneous
  Country: US (occurrence: US)
  Receive Date: 20250326
  Receipt Date: 20250326
  Transmission Date: 20250409
  Serious: No
  Sender: SANOFI AVENTIS
  Company Number: US-SA-2025SA086688

PATIENT
  Age: 12 Year
  Sex: Male
  Weight: 55.329 kg

DRUGS (1)
  1. DUPIXENT [Suspect]
     Active Substance: DUPILUMAB
     Indication: Dermatitis atopic
     Dosage: 200 MG, QOW
     Route: 058
     Dates: start: 20250322

REACTIONS (3)
  - Drug hypersensitivity [Unknown]
  - Pruritus [Unknown]
  - Eyelids pruritus [Unknown]

NARRATIVE: CASE EVENT DATE: 20250322
